FAERS Safety Report 18747501 (Version 1)
Quarter: 2021Q1

REPORT INFORMATION
  Report Type: Spontaneous
  Country: FI (occurrence: FI)
  Receive Date: 20210115
  Receipt Date: 20210115
  Transmission Date: 20210419
  Serious: Yes (Other)
  Sender: FDA-Public Use
  Company Number: FI-SEPTODONT-2021006076

PATIENT
  Age: 61 Year
  Sex: Female

DRUGS (5)
  1. SERETIDE [Concomitant]
     Active Substance: FLUTICASONE PROPIONATE\SALMETEROL XINAFOATE
  2. VENTOLINE [Concomitant]
     Active Substance: ALBUTEROL
  3. BISOPROLOL [Concomitant]
     Active Substance: BISOPROLOL
  4. ATORVASTATIN [Concomitant]
     Active Substance: ATORVASTATIN
     Indication: DENTAL LOCAL ANAESTHESIA
  5. ARTICAINE HYDROCHLORIDE/EPINEPHRINE BITARTRATE [Suspect]
     Active Substance: ARTICAINE HYDROCHLORIDE\EPINEPHRINE BITARTRATE
     Indication: DENTAL LOCAL ANAESTHESIA
     Dosage: 3.2,ML,TOTAL
     Route: 058
     Dates: start: 20171013, end: 20171013

REACTIONS (5)
  - Malaise [Recovered/Resolved]
  - Depressed level of consciousness [Recovered/Resolved]
  - Dizziness [Recovered/Resolved]
  - Hypoaesthesia [Recovered/Resolved]
  - Incorrect route of product administration [Unknown]

NARRATIVE: CASE EVENT DATE: 20171013
